FAERS Safety Report 7229187-2 (Version None)
Quarter: 2011Q1

REPORT INFORMATION
  Report Type: 
  Country: None (occurrence: None)
  Receive Date: 20110117
  Receipt Date: 20110105
  Transmission Date: 20110831
  Serious: Yes (Other)
  Sender: FDA-Public Use
  Company Number: JP-CELGENEUS-087-21880-10092748

PATIENT
  Sex: Female
  Weight: 44.8 kg

DRUGS (31)
  1. DEXAMETHASONE [Concomitant]
     Route: 048
     Dates: start: 20100917, end: 20100920
  2. TRYPTANOL [Concomitant]
     Indication: MULTIPLE MYELOMA
     Route: 048
     Dates: start: 20100819, end: 20100916
  3. DEPAKENE [Concomitant]
     Indication: MULTIPLE MYELOMA
     Route: 048
     Dates: start: 20100819, end: 20100916
  4. SELBEX [Concomitant]
     Route: 048
     Dates: start: 20100917, end: 20101110
  5. DEXAMETHASONE [Concomitant]
     Route: 048
     Dates: start: 20101014, end: 20101017
  6. VICCLOX [Concomitant]
     Route: 048
     Dates: start: 20100917, end: 20101110
  7. MYCOSYST [Concomitant]
     Route: 048
     Dates: start: 20100917, end: 20101110
  8. PURSENNID [Concomitant]
     Indication: MULTIPLE MYELOMA
     Route: 048
     Dates: start: 20100819, end: 20100916
  9. DEPAKENE [Concomitant]
     Route: 048
     Dates: start: 20100917, end: 20101110
  10. REVLIMID [Suspect]
     Route: 048
     Dates: start: 20100917, end: 20101007
  11. DEXAMETHASONE [Concomitant]
     Route: 048
     Dates: start: 20100904, end: 20100907
  12. DEXAMETHASONE [Concomitant]
     Route: 048
     Dates: start: 20101001, end: 20101004
  13. LOXONIN [Concomitant]
     Route: 048
     Dates: start: 20100917, end: 20101110
  14. AMOBAN [Concomitant]
     Route: 048
     Dates: start: 20100917, end: 20101110
  15. MAGMITT [Concomitant]
     Indication: MULTIPLE MYELOMA
     Route: 048
     Dates: start: 20100819, end: 20100916
  16. TRYPTANOL [Concomitant]
     Route: 048
     Dates: start: 20100917, end: 20101110
  17. REVLIMID [Suspect]
     Indication: MULTIPLE MYELOMA
     Route: 048
     Dates: start: 20100819, end: 20100908
  18. VICCLOX [Concomitant]
     Indication: PROPHYLAXIS
     Route: 048
     Dates: start: 20100819, end: 20100916
  19. OMEPRAL [Concomitant]
     Route: 048
     Dates: start: 20100917, end: 20101110
  20. REVLIMID [Suspect]
     Route: 048
     Dates: start: 20101014, end: 20101103
  21. LOXONIN [Concomitant]
     Indication: MULTIPLE MYELOMA
     Route: 048
     Dates: start: 20100819, end: 20100916
  22. AMOBAN [Concomitant]
     Indication: MULTIPLE MYELOMA
     Route: 048
     Dates: start: 20100819, end: 20100916
  23. BACTRIM [Concomitant]
     Indication: PROPHYLAXIS
     Route: 048
     Dates: start: 20100819, end: 20100916
  24. MYCOSYST [Concomitant]
     Indication: PROPHYLAXIS
     Route: 048
     Dates: start: 20100819, end: 20100916
  25. SELBEX [Concomitant]
     Indication: PROPHYLAXIS
     Route: 048
     Dates: start: 20100819, end: 20100916
  26. OMEPRAL [Concomitant]
     Indication: PROPHYLAXIS
     Route: 048
     Dates: start: 20100819, end: 20100916
  27. DUROTEP [Concomitant]
     Indication: MULTIPLE MYELOMA
     Route: 061
     Dates: start: 20100819, end: 20100916
  28. DUROTEP [Concomitant]
     Route: 061
     Dates: start: 20100917, end: 20101110
  29. DEXAMETHASONE [Concomitant]
     Route: 048
     Dates: start: 20100827, end: 20100830
  30. BACTRIM [Concomitant]
     Route: 048
     Dates: start: 20100917, end: 20101110
  31. DEXAMETHASONE [Concomitant]
     Route: 048
     Dates: start: 20100819, end: 20100822

REACTIONS (8)
  - HYPOCALCAEMIA [None]
  - CONSTIPATION [None]
  - RENAL TUBULAR ACIDOSIS [None]
  - THROMBOCYTOPENIA [None]
  - PNEUMONIA [None]
  - ANAEMIA [None]
  - STOMATITIS [None]
  - NEUTROPENIA [None]
